FAERS Safety Report 16545952 (Version 1)
Quarter: 2019Q3

REPORT INFORMATION
  Report Type: Spontaneous
  Country: US (occurrence: US)
  Receive Date: 20190709
  Receipt Date: 20190709
  Transmission Date: 20191004
  Serious: Yes (Hospitalization)
  Sender: FDA-Public Use
  Company Number: US-AKORN PHARMACEUTICALS-2019AKN01344

PATIENT
  Age: 18 Year
  Sex: Female
  Weight: 56.69 kg

DRUGS (3)
  1. CLARAVIS [Suspect]
     Active Substance: ISOTRETINOIN
     Indication: ACNE
     Dosage: 20 MG, 1X/DAY (IN THE MORNING; 30 MG IN THE EVENING) FOR 4 WEEKS
     Route: 048
     Dates: start: 20190408, end: 20190613
  2. OCELLA [Concomitant]
     Active Substance: DROSPIRENONE\ETHINYL ESTRADIOL
     Dosage: 1 DOSAGE UNIT, 1X/DAY
  3. MYORISAN [Suspect]
     Active Substance: ISOTRETINOIN
     Indication: ACNE
     Dosage: 30 MG, 1X/DAY (IN THE EVENING; 20 MG IN THE MORNING) FOR 4 WEEKS
     Dates: start: 20190408, end: 20190613

REACTIONS (2)
  - Dehydration [Recovered/Resolved]
  - Photosensitivity reaction [Recovered/Resolved]

NARRATIVE: CASE EVENT DATE: 20190613
